FAERS Safety Report 10036254 (Version 1)
Quarter: 2014Q1

REPORT INFORMATION
  Report Type: Spontaneous
  Country: US (occurrence: None)
  Receive Date: 20140306
  Receipt Date: 20140306
  Transmission Date: 20141002
  Serious: Yes (Other)
  Sender: FDA-Public Use
  Company Number: 163-21880-13114391

PATIENT
  Age: 77 Year
  Sex: Male
  Weight: 82.56 kg

DRUGS (8)
  1. REVLIMID (LENALIDOMIDE) (5 MILLIGRAM, CAPSULES) [Suspect]
     Indication: PLASMA CELL MYELOMA
     Dosage: 21 IN 28 D
     Route: 048
     Dates: start: 20131117
  2. STEROIDS (CORTICOSTEROIDS) [Concomitant]
  3. SIMVASTATIN (SIMVASTATIN) [Concomitant]
  4. ASPIRIN (ACETYLSALICYLIC ACID) [Concomitant]
  5. DEXAMETHASONE (DEXAMETHASONE) [Concomitant]
  6. FOSINOPRIL (FOSINOPRIL) [Concomitant]
  7. CORICIDIN HBP COLD AND FLU (CORICIDIN) [Concomitant]
  8. TRIBENZOR (TRIBENZOR) [Concomitant]

REACTIONS (7)
  - Weight increased [None]
  - Blood glucose increased [None]
  - Fatigue [None]
  - Dyspnoea [None]
  - Oedema peripheral [None]
  - Nasopharyngitis [None]
  - Epistaxis [None]
